FAERS Safety Report 16942567 (Version 1)
Quarter: 2019Q4

REPORT INFORMATION
  Report Type: Spontaneous
  Country: JP (occurrence: JP)
  Receive Date: 20191021
  Receipt Date: 20191021
  Transmission Date: 20200122
  Serious: Yes (Death)
  Sender: FDA-Public Use
  Company Number: JP-PROGENICS PHARMACEUTICALS-2019PGE00003

PATIENT

DRUGS (1)
  1. IOBENGUANE (131 I) [Suspect]
     Active Substance: IOBENGUANE I-131
     Indication: NEUROBLASTOMA
     Dosage: 518 OR 666 MBQKG
     Route: 065

REACTIONS (1)
  - Bone marrow failure [Fatal]
